FAERS Safety Report 19746316 (Version 3)
Quarter: 2021Q4

REPORT INFORMATION
  Report Type: Report from Study
  Country: US (occurrence: US)
  Receive Date: 20210826
  Receipt Date: 20211018
  Transmission Date: 20220303
  Serious: No
  Sender: FDA-Public Use
  Company Number: NVSC2021US192563

PATIENT
  Sex: Male

DRUGS (2)
  1. ENTRESTO [Suspect]
     Active Substance: SACUBITRIL\VALSARTAN
     Indication: Product used for unknown indication
     Dosage: 0.5 DF, BID
     Route: 048
  2. ENTRESTO [Suspect]
     Active Substance: SACUBITRIL\VALSARTAN
     Route: 048

REACTIONS (7)
  - Speech disorder [Unknown]
  - Hypotension [Unknown]
  - Ejection fraction abnormal [Unknown]
  - Hypersensitivity [Unknown]
  - Cough [Unknown]
  - Wrong technique in product usage process [Unknown]
  - Product dose omission issue [Unknown]
